FAERS Safety Report 5956471-2 (Version None)
Quarter: 2008Q4

REPORT INFORMATION
  Report Type: 
  Country: None (occurrence: None)
  Receive Date: 20081118
  Receipt Date: 20081113
  Transmission Date: 20090506
  Serious: Yes (Hospitalization, Other)
  Sender: FDA-Public Use
  Company Number: US-BRISTOL-MYERS SQUIBB COMPANY-14380356

PATIENT
  Age: 62 Year
  Sex: Male
  Weight: 71 kg

DRUGS (8)
  1. DASATINIB [Suspect]
     Indication: GLIOBLASTOMA
     Dosage: HELD ON 18OCT08 TAKEN FROM 29OCT-01NOV08
     Route: 048
     Dates: start: 20081008
  2. ERLOTINIB [Suspect]
     Indication: GLIOBLASTOMA
     Dosage: HELD ON 18OCT08 TAKEN FROM 29OCT-01NOV08 AT REDUCED DOSE OF 100MG
     Route: 048
     Dates: start: 20081008
  3. COREG [Concomitant]
     Route: 048
  4. LIPITOR [Concomitant]
     Route: 048
  5. LISINOPRIL AND HYDROCHLOROTHIAZIDE [Concomitant]
     Dosage: 1DF=10/12.5MG
     Route: 048
  6. DONNATAL [Concomitant]
     Dosage: DF=TAB
     Route: 048
  7. DEPAKOTE [Concomitant]
  8. ZANTAC [Concomitant]

REACTIONS (10)
  - ASTHENIA [None]
  - CONVULSION [None]
  - DEHYDRATION [None]
  - HYPOTENSION [None]
  - LETHARGY [None]
  - MALIGNANT NEOPLASM PROGRESSION [None]
  - PYREXIA [None]
  - RASH [None]
  - RENAL FAILURE ACUTE [None]
  - THERMAL BURN [None]
